FAERS Safety Report 25951064 (Version 2)
Quarter: 2025Q4

REPORT INFORMATION
  Report Type: Report from Study
  Country: ZA (occurrence: ZA)
  Receive Date: 20251023
  Receipt Date: 20251125
  Transmission Date: 20260118
  Serious: Yes (Hospitalization, Other)
  Sender: SANOFI AVENTIS
  Company Number: ZA-SA-2025SA187076

PATIENT
  Age: 56 Year
  Sex: Female

DRUGS (2)
  1. INSULIN GLARGINE [Suspect]
     Active Substance: INSULIN GLARGINE
     Indication: Type 2 diabetes mellitus
     Dosage: 36 IU, HS
     Route: 058
     Dates: start: 20180101
  2. INSULIN GLARGINE [Suspect]
     Active Substance: INSULIN GLARGINE
     Dosage: 30 IU, HS
     Route: 058

REACTIONS (12)
  - Diabetes mellitus inadequate control [Recovering/Resolving]
  - Hyperglycaemia [Recovering/Resolving]
  - Glycosylated haemoglobin increased [Recovering/Resolving]
  - Neuropathy peripheral [Recovered/Resolved]
  - Fat tissue increased [Unknown]
  - Weight increased [Recovering/Resolving]
  - Tonsillitis [Recovering/Resolving]
  - Wound [Recovered/Resolved]
  - Pain in extremity [Recovered/Resolved]
  - Blood glucose increased [Recovering/Resolving]
  - Influenza [Unknown]
  - Blood glucose decreased [Recovered/Resolved]

NARRATIVE: CASE EVENT DATE: 20250101
